FAERS Safety Report 23293599 (Version 1)
Quarter: 2023Q4

REPORT INFORMATION
  Report Type: Spontaneous
  Country: US (occurrence: None)
  Receive Date: 20231213
  Receipt Date: 20231213
  Transmission Date: 20240110
  Serious: No
  Sender: FDA-Public Use
  Company Number: None

PATIENT
  Age: 42 Year
  Sex: Female
  Weight: 67.5 kg

DRUGS (1)
  1. TEPEZZA [Suspect]
     Active Substance: TEPROTUMUMAB-TRBW
     Dates: start: 20230310, end: 20230731

REACTIONS (7)
  - Muscle spasms [None]
  - Alopecia [None]
  - Menstruation irregular [None]
  - Breast mass [None]
  - Foreign body [None]
  - Lymph nodes scan abnormal [None]
  - Intermenstrual bleeding [None]

NARRATIVE: CASE EVENT DATE: 20230310
